FAERS Safety Report 8740108 (Version 3)
Quarter: 2012Q4

REPORT INFORMATION
  Report Type: 
  Country: US (occurrence: US)
  Receive Date: 20120823
  Receipt Date: 20121212
  Transmission Date: 20130627
  Serious: Yes (Hospitalization)
  Sender: FDA-Public Use
  Company Number: US-TEVA-352753USA

PATIENT
  Age: 3 Year
  Sex: Female

DRUGS (9)
  1. MERCAPTOPURINE [Suspect]
     Indication: ACUTE LYMPHOCYTIC LEUKAEMIA
     Dates: start: 20120713, end: 20120721
  2. DASATINIB [Suspect]
     Indication: ACUTE LYMPHOCYTIC LEUKAEMIA
     Dosage: 40 Milligram Daily;
     Route: 048
     Dates: start: 20120529
  3. CYCLOPHOSPHAMIDE [Suspect]
     Indication: ACUTE LYMPHOCYTIC LEUKAEMIA
     Route: 042
     Dates: start: 20120721
  4. CYTARABINE [Suspect]
     Indication: ACUTE LYMPHOCYTIC LEUKAEMIA
     Route: 042
     Dates: start: 20120717, end: 20120922
  5. DOXORUBICIN [Suspect]
     Dosage: 2.4286 Milligram Daily;
     Route: 042
     Dates: start: 20121024, end: 20121113
  6. MIRALAX [Concomitant]
  7. ZOFRAN [Concomitant]
  8. NORVASC [Concomitant]
  9. FLUCONAZOLE [Concomitant]

REACTIONS (3)
  - Febrile neutropenia [Recovered/Resolved]
  - Neutropenia [Recovered/Resolved]
  - Viral upper respiratory tract infection [Recovered/Resolved]
